FAERS Safety Report 10240156 (Version 1)
Quarter: 2014Q2

REPORT INFORMATION
  Report Type: Spontaneous
  Country: FR (occurrence: FR)
  Receive Date: 20140617
  Receipt Date: 20140617
  Transmission Date: 20141212
  Serious: Yes (Other)
  Sender: FDA-Public Use
  Company Number: FR-AMGEN-FRASP2014044351

PATIENT
  Age: 32 Year
  Sex: Male

DRUGS (5)
  1. FILGRASTIM [Suspect]
     Indication: PRODUCT USED FOR UNKNOWN INDICATION
     Dosage: 5 MUG/KG/DAY D1-10
     Route: 042
  2. DOXORUBICIN [Concomitant]
     Indication: ACUTE MYELOID LEUKAEMIA
     Dosage: 60 MG/M2, D1-3
     Route: 042
  3. DOXORUBICIN [Concomitant]
     Dosage: 35 MG/M2, D8-9
     Route: 042
  4. CYTARABINE [Concomitant]
     Indication: ACUTE MYELOID LEUKAEMIA
     Dosage: 500 MG/M2, D1-3
     Route: 042
  5. CYTARABINE [Concomitant]
     Dosage: 2000 MG/M2, D8-10
     Route: 042

REACTIONS (2)
  - Respiratory tract infection [Recovered/Resolved]
  - Acute febrile neutrophilic dermatosis [Recovered/Resolved]
